FAERS Safety Report 8365571-1 (Version None)
Quarter: 2012Q2

REPORT INFORMATION
  Report Type: 
  Country: None (occurrence: None)
  Receive Date: 20120516
  Receipt Date: 20120511
  Transmission Date: 20120825
  Serious: Yes (Hospitalization)
  Sender: FDA-Public Use
  Company Number: US-ROCHE-1022753

PATIENT
  Sex: Female

DRUGS (26)
  1. RANIBIZUMAB [Suspect]
     Dates: start: 20101130
  2. OMEPRAZOLE [Concomitant]
     Indication: DYSPEPSIA
  3. ATENOLOL [Concomitant]
     Indication: HYPERTENSION
     Dates: start: 19800101, end: 20120101
  4. RANIBIZUMAB [Suspect]
     Indication: AGE-RELATED MACULAR DEGENERATION
     Dosage: LAST DOSE PRIOR TO SAE WAS ON: 22/NOV/2011, DOSE: BLINDED
     Route: 050
     Dates: start: 20100601
  5. RANIBIZUMAB [Suspect]
     Dates: start: 20110301
  6. CIPROFLOXACIN HCL [Concomitant]
     Indication: URINARY TRACT INFECTION
     Dates: start: 20110528, end: 20110621
  7. INSULINE [Concomitant]
     Indication: DIABETES MELLITUS
     Dates: start: 20111209, end: 20120229
  8. RANIBIZUMAB [Suspect]
     Dates: start: 20110426
  9. RANIBIZUMAB [Suspect]
     Dates: start: 20110628
  10. JANUVIA [Concomitant]
     Indication: DIABETES MELLITUS
     Dates: start: 20090101
  11. NITROGLYCERIN [Concomitant]
     Indication: ANGINA PECTORIS
     Dates: start: 19930101
  12. RANIBIZUMAB [Suspect]
     Dates: start: 20100831
  13. BENICAR [Concomitant]
     Indication: HYPERTENSION
     Dates: start: 20080101, end: 20120101
  14. RANIBIZUMAB [Suspect]
     Dates: start: 20100803
  15. RANIBIZUMAB [Suspect]
     Dates: start: 20100928
  16. RANIBIZUMAB [Suspect]
     Dates: start: 20101026
  17. SIMVASTATIN [Concomitant]
     Indication: HYPERCHOLESTEROLAEMIA
     Dates: start: 19961001, end: 20111209
  18. MULTIVITAMIN [Concomitant]
     Indication: MEDICAL DIET
     Dates: start: 19970702
  19. PRAVASTATIN [Concomitant]
     Indication: HYPERCHOLESTEROLAEMIA
     Dates: start: 20111209
  20. LISINOPRIL [Concomitant]
     Indication: HYPERTENSION
     Dates: start: 20111223
  21. ASPIRIN [Concomitant]
     Indication: CORONARY ARTERY DISEASE
     Dates: start: 20030101
  22. OXYBUTYNIN [Concomitant]
     Indication: INCONTINENCE
     Dates: start: 20040201
  23. NORVASC [Concomitant]
     Indication: HYPERTENSION
     Dates: start: 19930101
  24. LEVOTHYROXINE SODIUM [Concomitant]
     Indication: HYPOTHYROIDISM
     Dates: start: 20000101
  25. RANIBIZUMAB [Suspect]
     Dates: start: 20110125
  26. METOPROLOL TARTRATE [Concomitant]
     Indication: HYPERTENSION
     Dates: start: 20111223

REACTIONS (2)
  - CEREBROVASCULAR ACCIDENT [None]
  - HIP FRACTURE [None]
